FAERS Safety Report 5036160-1 (Version None)
Quarter: 2006Q2

REPORT INFORMATION
  Report Type: 
  Country: None (occurrence: None)
  Receive Date: 20060531
  Receipt Date: 20060301
  Transmission Date: 20061013
  Serious: No
  Sender: FDA-Public Use
  Company Number: PHEH2006US02821

PATIENT
  Sex: Female

DRUGS (7)
  1. EXJADE [Suspect]
     Indication: BLOOD IRON INCREASED
     Dosage: 1250 MG QD ORAL
     Route: 048
     Dates: start: 20060202
  2. PROCRIT [Concomitant]
  3. VITAMIN B6 [Concomitant]
  4. LOPRESSOR [Concomitant]
  5. MAXZIDE [Concomitant]
  6. DIGOXIN [Concomitant]
  7. VERAPAMIL [Concomitant]

REACTIONS (3)
  - ARTHRALGIA [None]
  - PAIN IN EXTREMITY [None]
  - SCIATICA [None]
